FAERS Safety Report 19880794 (Version 1)
Quarter: 2021Q3

REPORT INFORMATION
  Report Type: Spontaneous
  Country: CA (occurrence: CA)
  Receive Date: 20210925
  Receipt Date: 20210925
  Transmission Date: 20211014
  Serious: Yes (Other)
  Sender: FDA-Public Use
  Company Number: CA-TAKEDA-2021TUS057312

PATIENT
  Weight: 41 kg

DRUGS (1)
  1. GAMMAGARD LIQUID [Suspect]
     Active Substance: HUMAN IMMUNOGLOBULIN G
     Indication: CHRONIC INFLAMMATORY DEMYELINATING POLYRADICULONEUROPATHY
     Dosage: UNK
     Route: 042
     Dates: start: 202102

REACTIONS (7)
  - Oedema peripheral [Unknown]
  - Malaise [Unknown]
  - Vocal cord disorder [Unknown]
  - Condition aggravated [Unknown]
  - Urinary retention [Unknown]
  - Diarrhoea [Unknown]
  - Abdominal pain upper [Unknown]
